FAERS Safety Report 8906958 (Version 1)
Quarter: 2012Q4

REPORT INFORMATION
  Report Type: 
  Country: MX (occurrence: MX)
  Receive Date: 20121114
  Receipt Date: 20121114
  Transmission Date: 20130627
  Serious: Yes (Other)
  Sender: FDA-Public Use
  Company Number: PHHY2012MX104500

PATIENT
  Age: 10 Year
  Sex: Female

DRUGS (2)
  1. TRILEPTAL [Suspect]
     Indication: EPILEPSY
     Dosage: 1 DF, QD
     Route: 048
     Dates: start: 201204, end: 201207
  2. TRILEPTAL [Suspect]
     Dosage: 3 DF, QD
     Route: 048

REACTIONS (1)
  - Tic [Unknown]
